FAERS Safety Report 12547062 (Version 1)
Quarter: 2016Q3

REPORT INFORMATION
  Report Type: Spontaneous
  Country: US (occurrence: US)
  Receive Date: 20160711
  Receipt Date: 20160711
  Transmission Date: 20161109
  Serious: No
  Sender: FDA-Public Use
  Company Number: US-ASTRAZENECA-2016SE60768

PATIENT
  Sex: Female
  Weight: 90.7 kg

DRUGS (4)
  1. BRILINTA [Suspect]
     Active Substance: TICAGRELOR
     Indication: ACUTE CORONARY SYNDROME
     Route: 048
     Dates: start: 20160604
  2. BRILINTA [Suspect]
     Active Substance: TICAGRELOR
     Indication: STENT PLACEMENT
     Route: 048
     Dates: start: 20160604
  3. NEXIUM [Suspect]
     Active Substance: ESOMEPRAZOLE MAGNESIUM
     Indication: GASTRIC DISORDER
     Dosage: 40.0MG UNKNOWN
     Route: 048
     Dates: start: 20160104
  4. METOPROLOL TARTRATE. [Suspect]
     Active Substance: METOPROLOL TARTRATE
     Indication: CARDIAC DISORDER
     Dosage: 25.0MG UNKNOWN
     Route: 048
     Dates: start: 2012

REACTIONS (8)
  - Memory impairment [Unknown]
  - Cough [Unknown]
  - Tongue movement disturbance [Unknown]
  - Dyspnoea [Unknown]
  - Dry throat [Unknown]
  - Feeling abnormal [Unknown]
  - Sleep disorder [Unknown]
  - Contusion [Not Recovered/Not Resolved]
